FAERS Safety Report 6771978-6 (Version None)
Quarter: 2010Q2

REPORT INFORMATION
  Report Type: 
  Country: None (occurrence: None)
  Receive Date: 20100616
  Receipt Date: 20090423
  Transmission Date: 20101027
  Serious: No
  Sender: FDA-Public Use
  Company Number: US-ASTRAZENECA-2009UW10272

PATIENT
  Age: 57 Year
  Sex: Female
  Weight: 90.7 kg

DRUGS (7)
  1. RHINOCORT [Suspect]
     Indication: ASTHMA
     Route: 045
  2. NOVOLOG [Concomitant]
  3. PAXIL [Concomitant]
  4. LEVEMIR [Concomitant]
  5. FLEXERIL [Concomitant]
  6. CLONAZEPAM [Concomitant]
  7. ALPRAZOLAM [Concomitant]

REACTIONS (2)
  - INCORRECT DOSE ADMINISTERED [None]
  - OROPHARYNGEAL PAIN [None]
